FAERS Safety Report 7130234-7 (Version None)
Quarter: 2010Q4

REPORT INFORMATION
  Report Type: 
  Country: None (occurrence: None)
  Receive Date: 20101201
  Receipt Date: 20101118
  Transmission Date: 20110411
  Serious: Yes (Other)
  Sender: FDA-Public Use
  Company Number: PHHY2010US79250

PATIENT
  Age: 83 Year
  Sex: Female

DRUGS (2)
  1. RECLAST [Suspect]
     Dosage: 5MG/YEAR
     Route: 042
  2. DIOVAN [Suspect]
     Indication: HYPERTENSION

REACTIONS (8)
  - ASTHENIA [None]
  - FACIAL BONES FRACTURE [None]
  - FALL [None]
  - HEAD INJURY [None]
  - NAUSEA [None]
  - SKIN LACERATION [None]
  - SUTURE INSERTION [None]
  - SYNCOPE [None]
